FAERS Safety Report 8951071 (Version 2)
Quarter: 2013Q2

REPORT INFORMATION
  Report Type: Spontaneous
  Country: US (occurrence: US)
  Receive Date: 20121207
  Receipt Date: 20130516
  Transmission Date: 20140414
  Serious: Yes (Hospitalization, Other)
  Sender: FDA-Public Use
  Company Number: US-BAYER-2012-126667

PATIENT
  Age: 35 Year
  Sex: Female
  Weight: 56.69 kg

DRUGS (19)
  1. YASMIN [Suspect]
     Indication: CONTRACEPTION
     Dosage: UNK
     Dates: start: 201012, end: 20120507
  2. OCELLA [Suspect]
     Indication: CONTRACEPTION
     Dosage: UNK
     Dates: start: 201002, end: 201007
  3. SILVER SULFADIAZINE [Concomitant]
     Dosage: UNK
     Dates: start: 20120419
  4. HYDROXYCHLOROQUINE [Concomitant]
     Dosage: 400 MG, HS
     Route: 048
     Dates: start: 20120424, end: 20120619
  5. AMLODIPINE [Concomitant]
     Dosage: UNK
     Dates: start: 20120518
  6. ADVIL [Concomitant]
  7. BABY ASPIRIN [Concomitant]
     Dosage: UNK UNK, QD
     Dates: start: 201205
  8. VITAMIN D [Concomitant]
  9. CEPHALEXIN [Concomitant]
     Dosage: 500 MG, UNK
     Dates: start: 20120523
  10. NIFEDICAL XL [Concomitant]
     Dosage: 30 MG, UNK
     Dates: start: 20120523
  11. TRAMADOL [Concomitant]
     Dosage: 50 MG, UNK
     Dates: start: 20120523, end: 20120620
  12. NITROBIDE [Concomitant]
     Dosage: 2% OINTMENT
     Dates: start: 20120523
  13. VICODIN [Concomitant]
     Dosage: 5-500 MG 1 PILL EVERY 4 HOURS AS NEEDED
     Dates: start: 20120520
  14. COLECALCIFEROL [Concomitant]
  15. CYANOCOBALAMIN [Concomitant]
  16. IBUPROFEN [Concomitant]
  17. NIFEDIPINE [Concomitant]
  18. NITROGLYCERIN [Concomitant]
  19. DILTIAZEM [Concomitant]

REACTIONS (16)
  - Peripheral artery thrombosis [None]
  - Hypoaesthesia [None]
  - Skin ulcer [None]
  - Peripheral arterial occlusive disease [None]
  - Peripheral ischaemia [None]
  - Haematoma [None]
  - Oedema peripheral [None]
  - Pain in extremity [None]
  - Skin discolouration [None]
  - Anaemia [None]
  - Haemoglobin decreased [None]
  - Pain [None]
  - Injury [None]
  - General physical health deterioration [None]
  - Anxiety [None]
  - Emotional distress [None]
